FAERS Safety Report 19224050 (Version 1)
Quarter: 2021Q2

REPORT INFORMATION
  Report Type: Spontaneous
  Country: US (occurrence: US)
  Receive Date: 20210505
  Receipt Date: 20210505
  Transmission Date: 20210717
  Serious: No
  Sender: FDA-Public Use
  Company Number: US-ROCHE-2568203

PATIENT
  Age: 79 Year
  Sex: Male
  Weight: 86.26 kg

DRUGS (4)
  1. ESBRIET [Suspect]
     Active Substance: PIRFENIDONE
     Route: 048
     Dates: start: 20200225
  2. LEXAPRO [Concomitant]
     Active Substance: ESCITALOPRAM OXALATE
  3. ESBRIET [Suspect]
     Active Substance: PIRFENIDONE
     Indication: IDIOPATHIC PULMONARY FIBROSIS
     Route: 048
     Dates: start: 20200215
  4. ESBRIET [Suspect]
     Active Substance: PIRFENIDONE
     Route: 048

REACTIONS (8)
  - Decreased appetite [Unknown]
  - Depression [Unknown]
  - Dyspnoea [Not Recovered/Not Resolved]
  - Insomnia [Unknown]
  - Sputum increased [Not Recovered/Not Resolved]
  - Abdominal discomfort [Unknown]
  - Abdominal pain upper [Recovered/Resolved]
  - Cough [Not Recovered/Not Resolved]

NARRATIVE: CASE EVENT DATE: 202003
